FAERS Safety Report 8607723-9 (Version None)
Quarter: 2012Q3

REPORT INFORMATION
  Report Type: 
  Country: None (occurrence: None)
  Receive Date: 20120821
  Receipt Date: 20120814
  Transmission Date: 20120928
  Serious: Yes (Hospitalization, Other)
  Sender: FDA-Public Use
  Company Number: BR-PFIZER INC-2012124967

PATIENT
  Age: 67 Year
  Sex: Male
  Weight: 98 kg

DRUGS (7)
  1. AMLODIPINE [Concomitant]
  2. ENALAPRIL [Concomitant]
     Dosage: 20 MG, 2X/DAY
  3. SUTENT [Suspect]
     Indication: RENAL CELL CARCINOMA
     Dosage: 50 MG, ALTERNATE DAY CYCLIC (CYCLE 4 FOR 2)
     Route: 048
     Dates: start: 20120511
  4. LOSARTAN [Concomitant]
  5. AMIODARONE [Concomitant]
     Dosage: 200 MG, 2X/DAY
  6. HYDROCHLOROTHIAZIDE [Concomitant]
     Dosage: 25 MG, 1X/DAY
  7. TAMSULOSIN HCL [Concomitant]
     Dosage: 4 MG, 1X/DAY

REACTIONS (8)
  - PNEUMONIA [None]
  - BLOOD PRESSURE INCREASED [None]
  - FATIGUE [None]
  - CARDIAC FAILURE [None]
  - SKIN DISORDER [None]
  - LUNG DISORDER [None]
  - DYSPNOEA [None]
  - ASTHENIA [None]
